FAERS Safety Report 8242262-9 (Version None)
Quarter: 2012Q1

REPORT INFORMATION
  Report Type: 
  Country: None (occurrence: None)
  Receive Date: 20120329
  Receipt Date: 20120327
  Transmission Date: 20120608
  Serious: Yes (Hospitalization)
  Sender: FDA-Public Use
  Company Number: US-PFIZER INC-2012079257

PATIENT
  Sex: Female
  Weight: 77.098 kg

DRUGS (3)
  1. CHANTIX [Suspect]
     Indication: SMOKING CESSATION THERAPY
     Dosage: 0.5 MG, DAILY
     Route: 048
     Dates: start: 20090101, end: 20090101
  2. CORTISONE [Suspect]
     Indication: PRURITUS
     Dosage: UNK
  3. HABITROL [Suspect]
     Indication: SMOKING CESSATION THERAPY
     Dosage: UNK
     Dates: start: 20111224, end: 20120301

REACTIONS (5)
  - DRUG INEFFECTIVE [None]
  - CEREBROVASCULAR ACCIDENT [None]
  - BLISTER [None]
  - THERMAL BURN [None]
  - PRURITUS [None]
